FAERS Safety Report 7816715-9 (Version None)
Quarter: 2011Q4

REPORT INFORMATION
  Report Type: 
  Country: None (occurrence: None)
  Receive Date: 20111017
  Receipt Date: 20111012
  Transmission Date: 20120403
  Serious: No
  Sender: FDA-Public Use
  Company Number: US-PFIZER INC-2011244109

PATIENT
  Sex: Female

DRUGS (1)
  1. PRISTIQ [Suspect]
     Dosage: UNK
     Route: 048
     Dates: start: 20100101

REACTIONS (3)
  - DIZZINESS [None]
  - HEADACHE [None]
  - PARAESTHESIA [None]
